FAERS Safety Report 5987885-2 (Version None)
Quarter: 2008Q4

REPORT INFORMATION
  Report Type: 
  Country: None (occurrence: None)
  Receive Date: 20081209
  Receipt Date: 20080819
  Transmission Date: 20090506
  Serious: No
  Sender: FDA-Public Use
  Company Number: US-TYCO HEALTHCARE/MALLINCKRODT-T200801366

PATIENT

DRUGS (4)
  1. ULTRA-TECHNEKOW [Suspect]
  2. CELEBREX [Concomitant]
     Indication: RHEUMATOID ARTHRITIS
     Dosage: 200 MG, QD
     Route: 048
  3. SYNTHROID [Concomitant]
     Indication: HYPOTHYROIDISM
     Dosage: 100 MG, QD
     Route: 048
  4. LIPITOR [Concomitant]
     Indication: CARDIAC DISORDER
     Dosage: 10 MG, QD
     Route: 048

REACTIONS (4)
  - BACK PAIN [None]
  - BLOOD PRESSURE INCREASED [None]
  - GROIN PAIN [None]
  - HYPOAESTHESIA [None]
